FAERS Safety Report 24951974 (Version 1)
Quarter: 2025Q1

REPORT INFORMATION
  Report Type: Spontaneous
  Country: US (occurrence: None)
  Receive Date: 20250207
  Receipt Date: 20250207
  Transmission Date: 20250408
  Serious: Yes (Life-Threatening, Disabling)
  Sender: FDA-CTU
  Company Number: None

PATIENT
  Age: 60 Year
  Sex: Female
  Weight: 62.8 kg

DRUGS (2)
  1. CEFTRIAXONE [Suspect]
     Active Substance: CEFTRIAXONE
     Indication: Pneumonia
     Route: 042
     Dates: start: 20250206, end: 20250206
  2. MORPHINE [Concomitant]
     Active Substance: MORPHINE
     Dates: start: 20250206, end: 20250206

REACTIONS (1)
  - Pulse absent [None]

NARRATIVE: CASE EVENT DATE: 20250206
